FAERS Safety Report 9160411 (Version 1)
Quarter: 2013Q1

REPORT INFORMATION
  Report Type: Spontaneous
  Country: DE (occurrence: None)
  Receive Date: 20130219
  Receipt Date: 20130219
  Transmission Date: 20140127
  Serious: Yes (Congenital Anomaly, Other)
  Sender: FDA-Public Use
  Company Number: VAL_01405_2013

PATIENT
  Sex: Male

DRUGS (7)
  1. METOPROLOL [Suspect]
     Indication: PRODUCT USED FOR UNKNOWN INDICATION
     Route: 064
  2. OLMESARTAN (OLMESARTAN) (TABLET) (OLMESARTAN) [Suspect]
     Route: 064
  3. ENALAPRIL [Suspect]
     Route: 064
  4. LERCANIDIPINE (LERCANIDIPINE) [Suspect]
     Route: 064
  5. NIFEDIPINE [Suspect]
     Route: 064
  6. METHYLDOPA [Suspect]
     Route: 064
  7. UNSPECIFIED INGREDIENTS [Suspect]
     Route: 064

REACTIONS (6)
  - Caesarean section [None]
  - Supernumerary nipple [None]
  - Maternal drugs affecting foetus [None]
  - Kidney duplex [None]
  - Congenital choroid plexus cyst [None]
  - Congenital hearing disorder [None]
